FAERS Safety Report 23668891 (Version 1)
Quarter: 2024Q1

REPORT INFORMATION
  Report Type: Spontaneous
  Country: US (occurrence: None)
  Receive Date: 20240323
  Receipt Date: 20240323
  Transmission Date: 20240410
  Serious: Yes (Other)
  Sender: FDA-Public Use
  Company Number: None

PATIENT
  Sex: Female

DRUGS (5)
  1. ENBREL [Suspect]
     Active Substance: ETANERCEPT
     Indication: Psoriasis
     Dates: start: 20240209
  2. ACITRETIN CAP 10MG [Concomitant]
  3. AMLODIPINE [Concomitant]
  4. CLOBETASOL [Concomitant]
  5. ROSUVASTATIN [Concomitant]
     Active Substance: ROSUVASTATIN

REACTIONS (3)
  - Surgery [None]
  - Therapy interrupted [None]
  - Therapy non-responder [None]
